FAERS Safety Report 24386299 (Version 1)
Quarter: 2024Q4

REPORT INFORMATION
  Report Type: Spontaneous
  Country: CN (occurrence: CN)
  Receive Date: 20241001
  Receipt Date: 20241001
  Transmission Date: 20250115
  Serious: Yes (Hospitalization)
  Sender: ROCHE
  Company Number: CN-ROCHE-10000094160

PATIENT
  Age: 39 Year
  Sex: Male
  Weight: 61 kg

DRUGS (4)
  1. TRASTUZUMAB [Suspect]
     Active Substance: TRASTUZUMAB
     Indication: Metastases to bone
     Route: 042
     Dates: start: 20240719, end: 20240719
  2. SINTILIMAB [Suspect]
     Active Substance: SINTILIMAB
     Indication: Metastases to bone
     Route: 042
     Dates: start: 20240719, end: 20240719
  3. GIMERACIL\OTERACIL\TEGAFUR [Suspect]
     Active Substance: GIMERACIL\OTERACIL POTASSIUM\TEGAFUR
     Indication: Metastases to bone
     Route: 048
     Dates: start: 20240719, end: 20240801
  4. OXALIPLATIN FOR INJECTION [Suspect]
     Active Substance: OXALIPLATIN
     Indication: Metastases to bone
     Route: 042
     Dates: start: 20240719, end: 20240719

REACTIONS (1)
  - Myelosuppression [Recovering/Resolving]

NARRATIVE: CASE EVENT DATE: 20240809
